FAERS Safety Report 6857801-X (Version None)
Quarter: 2010Q3

REPORT INFORMATION
  Report Type: 
  Country: None (occurrence: None)
  Receive Date: 20100719
  Receipt Date: 20080313
  Transmission Date: 20110219
  Serious: Yes (Other)
  Sender: FDA-Public Use
  Company Number: US-PFIZER INC-2008009677

PATIENT
  Sex: Female
  Weight: 81.2 kg

DRUGS (5)
  1. CHANTIX [Suspect]
     Indication: SMOKING CESSATION THERAPY
     Route: 048
     Dates: start: 20080120, end: 20080121
  2. CELEBREX [Concomitant]
  3. OXYCODONE HCL [Concomitant]
  4. CLONAZEPAM [Concomitant]
  5. PERCOCET [Concomitant]

REACTIONS (6)
  - DIZZINESS [None]
  - DRUG INTOLERANCE [None]
  - DYSGEUSIA [None]
  - FEELING ABNORMAL [None]
  - HALLUCINATION [None]
  - VISUAL IMPAIRMENT [None]
